FAERS Safety Report 13380988 (Version 1)
Quarter: 2017Q1

REPORT INFORMATION
  Report Type: Spontaneous
  Country: US (occurrence: US)
  Receive Date: 20170328
  Receipt Date: 20170328
  Transmission Date: 20170429
  Serious: Yes (Hospitalization)
  Sender: FDA-Public Use
  Company Number: None

PATIENT
  Age: 43 Year
  Sex: Male
  Weight: 74 kg

DRUGS (2)
  1. PHENYTOIN 50MG TABLET CHEW [Suspect]
     Active Substance: PHENYTOIN
     Indication: SEIZURE
     Route: 048
     Dates: start: 20170131
  2. LEVETIRACETAM. [Concomitant]
     Active Substance: LEVETIRACETAM

REACTIONS (6)
  - Speech disorder [None]
  - Cognitive disorder [None]
  - Confusional state [None]
  - Hypersomnia [None]
  - Somnolence [None]
  - Mood altered [None]

NARRATIVE: CASE EVENT DATE: 20170311
